FAERS Safety Report 9023319 (Version 1)
Quarter: 2013Q1

REPORT INFORMATION
  Report Type: Spontaneous
  Country: US (occurrence: US)
  Receive Date: 20130119
  Receipt Date: 20130119
  Transmission Date: 20140127
  Serious: Yes (Death, Other)
  Sender: FDA-Public Use
  Company Number: US-UCBSA-075442

PATIENT
  Age: 50 Year
  Sex: Male

DRUGS (5)
  1. OMEPRAZOLE [Suspect]
     Route: 048
  2. QUETIAPINE [Suspect]
     Route: 048
  3. CLONAZEPAM [Suspect]
     Route: 048
  4. PAROXITINE [Suspect]
     Route: 048
  5. INDOMETHACIN [Suspect]
     Dosage: EXTENDED RELEASE
     Route: 048

REACTIONS (1)
  - Completed suicide [Fatal]
